FAERS Safety Report 5818985-5 (Version None)
Quarter: 2008Q3

REPORT INFORMATION
  Report Type: 
  Country: None (occurrence: None)
  Receive Date: 20080721
  Receipt Date: 20080721
  Transmission Date: 20090109
  Serious: Yes (Hospitalization)
  Sender: FDA-Public Use
  Company Number: None

PATIENT
  Age: 61 Year
  Sex: Female
  Weight: 90.4 kg

DRUGS (9)
  1. BEVACIZUMAB 25MG/ML GENETECH, INC [Suspect]
     Indication: GLIOBLASTOMA MULTIFORME
     Dosage: 10MG/KG Q 2 WEEKS IV DRIP
     Route: 041
     Dates: start: 20080501, end: 20080701
  2. HUMULIN 70/30 [Concomitant]
  3. CATAPRES [Concomitant]
  4. NEURONTIN [Concomitant]
  5. CLARITIN [Concomitant]
  6. GLUCOPHAGE [Concomitant]
  7. PRILOSEC [Concomitant]
  8. LISINOPRIL [Concomitant]
  9. VICODIN [Concomitant]

REACTIONS (3)
  - MUSCULAR WEAKNESS [None]
  - NEUROLOGICAL SYMPTOM [None]
  - OEDEMA [None]
